FAERS Safety Report 13039556 (Version 3)
Quarter: 2017Q1

REPORT INFORMATION
  Report Type: Spontaneous
  Country: US (occurrence: US)
  Receive Date: 20161219
  Receipt Date: 20170221
  Transmission Date: 20170428
  Serious: No
  Sender: FDA-Public Use
  Company Number: US-ACTELION-A-NJ2016-143866

PATIENT
  Age: 59 Year
  Sex: Female
  Weight: 127.8 kg

DRUGS (18)
  1. ADCIRCA [Concomitant]
     Active Substance: TADALAFIL
  2. POTASSIUM [Concomitant]
     Active Substance: POTASSIUM
  3. FOSINOPRIL [Concomitant]
     Active Substance: FOSINOPRIL
  4. UPTRAVI [Suspect]
     Active Substance: SELEXIPAG
     Indication: PULMONARY ARTERIAL HYPERTENSION
     Dosage: 1200 MCG, BID
     Route: 048
  5. HYDROCODONE BITARTRATE. [Concomitant]
     Active Substance: HYDROCODONE BITARTRATE
  6. OMEPRAZOLE. [Concomitant]
     Active Substance: OMEPRAZOLE
  7. FUROSEMIDE. [Concomitant]
     Active Substance: FUROSEMIDE
  8. AMBRISENTAN [Suspect]
     Active Substance: AMBRISENTAN
     Indication: PULMONARY ARTERIAL HYPERTENSION
     Dosage: 10 MG, QD
     Route: 048
     Dates: start: 20150423
  9. OXYBUTYNIN [Concomitant]
     Active Substance: OXYBUTYNIN
  10. METOLAZONE. [Concomitant]
     Active Substance: METOLAZONE
  11. PROPRANOLOL [Concomitant]
     Active Substance: PROPRANOLOL HYDROCHLORIDE
  12. SPIRONOLACTONE. [Concomitant]
     Active Substance: SPIRONOLACTONE
  13. ATIVAN [Concomitant]
     Active Substance: LORAZEPAM
  14. LANTUS [Concomitant]
     Active Substance: INSULIN GLARGINE
  15. TRAZODONE [Concomitant]
     Active Substance: TRAZODONE HYDROCHLORIDE
  16. METFORMIN [Concomitant]
     Active Substance: METFORMIN HYDROCHLORIDE
     Indication: ESSENTIAL HYPERTENSION
  17. WARFARIN [Concomitant]
     Active Substance: WARFARIN
  18. JANUVIA [Concomitant]
     Active Substance: SITAGLIPTIN PHOSPHATE

REACTIONS (7)
  - Abdominal discomfort [Unknown]
  - Myalgia [Unknown]
  - Malaise [Recovered/Resolved]
  - Diarrhoea [Unknown]
  - Pain in extremity [Unknown]
  - Musculoskeletal pain [Unknown]
  - Headache [Unknown]

NARRATIVE: CASE EVENT DATE: 201604
